FAERS Safety Report 10062716 (Version 3)
Quarter: 2014Q2

REPORT INFORMATION
  Report Type: Report from Study
  Country: ZA (occurrence: ZA)
  Receive Date: 20140407
  Receipt Date: 20140513
  Transmission Date: 20141212
  Serious: Yes (Hospitalization, Congenital Anomaly)
  Sender: FDA-Public Use
  Company Number: ZA-VIIV HEALTHCARE LIMITED-A1068050A

PATIENT
  Age: 0 Day
  Sex: Female
  Weight: 1.1 kg

DRUGS (3)
  1. COMBIVIR [Suspect]
     Indication: HIV INFECTION
     Route: 064
     Dates: start: 20130812
  2. NORVIR [Suspect]
     Indication: HIV INFECTION
     Dosage: 100MG PER DAY
     Route: 064
     Dates: start: 20130812
  3. REYATAZ [Suspect]
     Indication: HIV INFECTION
     Dosage: 300MG PER DAY
     Route: 064
     Dates: start: 20130812

REACTIONS (4)
  - Necrotising enterocolitis neonatal [Unknown]
  - Sepsis neonatal [Unknown]
  - Premature baby [Unknown]
  - Foetal exposure during pregnancy [Unknown]
